FAERS Safety Report 7713501-5 (Version None)
Quarter: 2011Q3

REPORT INFORMATION
  Report Type: 
  Country: None (occurrence: None)
  Receive Date: 20110826
  Receipt Date: 20110819
  Transmission Date: 20111222
  Serious: Yes (Hospitalization)
  Sender: FDA-Public Use
  Company Number: JP-AMGEN-JPNCT2011043638

PATIENT
  Age: 73 Year
  Sex: Female

DRUGS (2)
  1. CALCICHEW D3 [Concomitant]
     Dosage: UNKNOWN
     Route: 048
     Dates: end: 20110814
  2. DENOSUMAB [Suspect]
     Indication: OSTEOPOROSIS
     Dates: start: 20110222

REACTIONS (1)
  - COLITIS ISCHAEMIC [None]
